FAERS Safety Report 5723414-6 (Version None)
Quarter: 2008Q2

REPORT INFORMATION
  Report Type: 
  Country: None (occurrence: None)
  Receive Date: 20080430
  Receipt Date: 20080424
  Transmission Date: 20081010
  Serious: Yes (Other)
  Sender: FDA-Public Use
  Company Number: PHNU2008DE00934

PATIENT
  Age: 64 Year
  Sex: Male
  Weight: 80 kg

DRUGS (3)
  1. DIOVAN [Suspect]
     Indication: HYPERTENSION
     Dosage: 1 DF, QD
     Route: 048
     Dates: start: 20071220, end: 20080204
  2. CARMEN [Concomitant]
     Indication: HYPERTENSION
     Dosage: UNK, UNK
     Route: 048
  3. EUTHYROX [Concomitant]
     Indication: GOITRE
     Dosage: 75 MG/DAY
     Route: 065
     Dates: start: 19991221

REACTIONS (1)
  - LIPASE INCREASED [None]
